FAERS Safety Report 8360711-2 (Version None)
Quarter: 2012Q2

REPORT INFORMATION
  Report Type: 
  Country: None (occurrence: None)
  Receive Date: 20120515
  Receipt Date: 20120510
  Transmission Date: 20120825
  Serious: Yes (Life-Threatening, Hospitalization)
  Sender: FDA-Public Use
  Company Number: CH-ASTRAZENECA-2012SE30117

PATIENT
  Age: 46 Year
  Sex: Female

DRUGS (18)
  1. NOROXIN [Concomitant]
     Route: 048
  2. ESCITALOPRAM [Interacting]
     Indication: DEPRESSION
     Route: 048
     Dates: start: 20070101, end: 20120429
  3. PREZISTA [Interacting]
     Indication: HIV TEST
     Route: 048
     Dates: start: 20120425
  4. TRUVADA [Concomitant]
     Route: 048
  5. OXAZEPAM [Concomitant]
     Route: 048
  6. ROHYPNOL [Concomitant]
     Route: 048
  7. IMPORTAL [Concomitant]
     Route: 048
  8. TORSEMIDE [Concomitant]
     Route: 048
  9. FLUTICASONE PROPIONATE/SALMETEROL [Concomitant]
     Route: 055
  10. NASONEX [Concomitant]
     Route: 045
  11. INTELENCE [Concomitant]
     Dates: end: 20120420
  12. MORPHINE SULFATE [Concomitant]
     Route: 048
  13. ISENTRESS [Concomitant]
     Dates: end: 20120420
  14. LAMIVUDINE (EPIVIR HBV) [Concomitant]
     Dates: end: 20120420
  15. ALDACTONE [Concomitant]
  16. NEXIUM [Suspect]
     Indication: GASTROOESOPHAGEAL REFLUX DISEASE
     Route: 048
     Dates: start: 20120422
  17. NORVIR [Interacting]
     Indication: HIV TEST
     Route: 048
     Dates: start: 20120425
  18. ATOVAQUONE [Concomitant]
     Route: 048

REACTIONS (7)
  - HYPERHIDROSIS [None]
  - CONFUSIONAL STATE [None]
  - DRUG INTERACTION [None]
  - SEROTONIN SYNDROME [None]
  - TREMOR [None]
  - MYOCLONUS [None]
  - MYDRIASIS [None]
